FAERS Safety Report 7130741-7 (Version None)
Quarter: 2010Q4

REPORT INFORMATION
  Report Type: 
  Country: None (occurrence: None)
  Receive Date: 20101201
  Receipt Date: 20101124
  Transmission Date: 20110411
  Serious: Yes (Hospitalization, Other)
  Sender: FDA-Public Use
  Company Number: US-ROXANE LABORATORIES, INC.-2010-RO-01553RO

PATIENT
  Age: 3 Day
  Sex: Male
  Weight: 3 kg

DRUGS (2)
  1. ZIDOVUDINE [Suspect]
     Dosage: 120 MG
     Route: 048
  2. ZIDOVUDINE [Suspect]
     Route: 064

REACTIONS (4)
  - ACCIDENTAL OVERDOSE [None]
  - BLOOD LACTIC ACID INCREASED [None]
  - BRADYCARDIA [None]
  - DRUG ADMINISTRATION ERROR [None]
